FAERS Safety Report 26101979 (Version 1)
Quarter: 2025Q4

REPORT INFORMATION
  Report Type: Spontaneous
  Country: JP (occurrence: JP)
  Receive Date: 20251128
  Receipt Date: 20251128
  Transmission Date: 20260118
  Serious: Yes (Other)
  Sender: UCB
  Company Number: JP-UCBJ-CD202515625UCBPHAPROD

PATIENT
  Age: 26 Year
  Weight: 46 kg

DRUGS (13)
  1. FINTEPLA [Suspect]
     Active Substance: FENFLURAMINE
     Indication: Lennox-Gastaut syndrome
     Dosage: 0.35 MILLIGRAM/KILOGRAM, 2X/DAY (BID)
  2. FINTEPLA [Suspect]
     Active Substance: FENFLURAMINE
     Dosage: 22.8 MILLIGRAM/DAY
  3. FINTEPLA [Suspect]
     Active Substance: FENFLURAMINE
     Dosage: 18.48 MILLIGRAM/DAY
  4. FINTEPLA [Suspect]
     Active Substance: FENFLURAMINE
     Dosage: 14.08 MILLIGRAM/DAY
  5. FINTEPLA [Suspect]
     Active Substance: FENFLURAMINE
     Dosage: 13.64 MILLIGRAM/DAY
  6. FINTEPLA [Suspect]
     Active Substance: FENFLURAMINE
     Dosage: 13.2 MILLIGRAM/DAY
  7. FINTEPLA [Suspect]
     Active Substance: FENFLURAMINE
     Dosage: 13.64 MILLIGRAM/DAY
  8. LEVETIRACETAM [Concomitant]
     Active Substance: LEVETIRACETAM
     Indication: Product used for unknown indication
     Dosage: UNK
  9. VALPROATE SODIUM [Concomitant]
     Active Substance: VALPROATE SODIUM
     Indication: Product used for unknown indication
     Dosage: UNK
  10. TOPIRAMATE [Concomitant]
     Active Substance: TOPIRAMATE
     Indication: Product used for unknown indication
     Dosage: UNK
  11. CLOBAZAM [Concomitant]
     Active Substance: CLOBAZAM
     Indication: Product used for unknown indication
     Dosage: UNK
  12. RUFINAMIDE [Concomitant]
     Active Substance: RUFINAMIDE
     Indication: Product used for unknown indication
     Dosage: UNK
  13. LAMOTRIGINE [Concomitant]
     Active Substance: LAMOTRIGINE
     Indication: Product used for unknown indication
     Dosage: UNK

REACTIONS (9)
  - Epilepsy [Unknown]
  - Somnolence [Unknown]
  - Asthenia [Recovering/Resolving]
  - Decreased appetite [Recovering/Resolving]
  - Alopecia areata [Unknown]
  - Alopecia [Unknown]
  - Weight decreased [Unknown]
  - Prescribed overdose [Unknown]
  - Off label use [Unknown]
